FAERS Safety Report 13760559 (Version 2)
Quarter: 2017Q3

REPORT INFORMATION
  Report Type: Spontaneous
  Country: RU (occurrence: RU)
  Receive Date: 20170717
  Receipt Date: 20170726
  Transmission Date: 20171127
  Serious: Yes (Other)
  Sender: FDA-Public Use
  Company Number: RU-ASTRAZENECA-2017SE72175

PATIENT
  Age: 66 Year
  Sex: Male
  Weight: 76 kg

DRUGS (9)
  1. METFORMIN [Concomitant]
     Active Substance: METFORMIN HYDROCHLORIDE
  2. ATORIS [Concomitant]
     Active Substance: ATORVASTATIN CALCIUM
  3. FORXIGA [Concomitant]
     Active Substance: DAPAGLIFLOZIN
  4. VALSACOR [Concomitant]
     Active Substance: VALSARTAN
  5. BRILINTA [Suspect]
     Active Substance: TICAGRELOR
     Indication: CAROTID ARTERY STENT INSERTION
     Route: 048
     Dates: start: 2015
  6. CARDIOMAGNYL [Concomitant]
     Active Substance: ASPIRIN\MAGNESIUM HYDROXIDE
  7. MANINIL [Concomitant]
     Active Substance: GLYBURIDE
  8. INDAPAMIDE. [Concomitant]
     Active Substance: INDAPAMIDE
  9. AMLODIPIN [Concomitant]
     Active Substance: AMLODIPINE BESYLATE

REACTIONS (3)
  - Cerebrovascular accident [Unknown]
  - Off label use [Not Recovered/Not Resolved]
  - Product use in unapproved indication [Not Recovered/Not Resolved]

NARRATIVE: CASE EVENT DATE: 2015
